FAERS Safety Report 15294370 (Version 1)
Quarter: 2018Q3

REPORT INFORMATION
  Report Type: Spontaneous
  Country: US (occurrence: US)
  Receive Date: 20180807
  Receipt Date: 20180807
  Transmission Date: 20181010
  Serious: Yes (Other)
  Sender: FDA-Public Use
  Company Number: None

PATIENT
  Age: 66 Year
  Sex: Female
  Weight: 102.06 kg

DRUGS (1)
  1. GLATIRAMER ACETATE. [Suspect]
     Active Substance: GLATIRAMER ACETATE
     Indication: MULTIPLE SCLEROSIS
     Dosage: ?          OTHER FREQUENCY:3 WEEKS;?
     Route: 058
     Dates: start: 20180707

REACTIONS (13)
  - Moaning [None]
  - Nausea [None]
  - Pain in extremity [None]
  - Musculoskeletal stiffness [None]
  - Musculoskeletal pain [None]
  - Headache [None]
  - Visual impairment [None]
  - Arthralgia [None]
  - Vision blurred [None]
  - Confusional state [None]
  - Pain [None]
  - Dyspnoea [None]
  - Myalgia [None]

NARRATIVE: CASE EVENT DATE: 20180707
